FAERS Safety Report 23617683 (Version 1)
Quarter: 2024Q1

REPORT INFORMATION
  Report Type: Spontaneous
  Country: US (occurrence: None)
  Receive Date: 20240311
  Receipt Date: 20240311
  Transmission Date: 20240410
  Serious: Yes (Death)
  Sender: FDA-Public Use
  Company Number: None

PATIENT
  Age: 79 Year
  Sex: Male

DRUGS (1)
  1. H.P. ACTHAR [Suspect]
     Active Substance: CORTICOTROPIN
     Indication: Renal transplant
     Dosage: OTHER QUANTITY : 80 UNITS;?OTHER FREQUENCY : EVERYTHIRDDAY;?

REACTIONS (1)
  - Death [None]
